FAERS Safety Report 7779154-5 (Version None)
Quarter: 2011Q3

REPORT INFORMATION
  Report Type: 
  Country: None (occurrence: None)
  Receive Date: 20110926
  Receipt Date: 20110913
  Transmission Date: 20111222
  Serious: Yes (Life-Threatening, Other)
  Sender: FDA-Public Use
  Company Number: CA-ELI_LILLY_AND_COMPANY-CA201109003249

PATIENT

DRUGS (1)
  1. ZYPREXA [Suspect]
     Indication: BIPOLAR DISORDER

REACTIONS (5)
  - DEPRESSION [None]
  - ANXIETY [None]
  - APPARENT LIFE THREATENING EVENT [None]
  - AGGRESSION [None]
  - SYNCOPE [None]
